FAERS Safety Report 6595156-9 (Version None)
Quarter: 2010Q1

REPORT INFORMATION
  Report Type: 
  Country: None (occurrence: None)
  Receive Date: 20100212
  Receipt Date: 20100203
  Transmission Date: 20100710
  Serious: Yes (Hospitalization)
  Sender: FDA-Public Use
  Company Number: 2010000661

PATIENT
  Age: 42 Year
  Sex: Male
  Weight: 90.7194 kg

DRUGS (5)
  1. ACTIQ [Suspect]
     Indication: NECK PAIN
     Dosage: 4800 MCG (1200 MCG, 4 IN 1 D), BU
     Route: 002
  2. OXYCONTIN [Suspect]
     Indication: PAIN
  3. PERCOCET [Suspect]
     Indication: PAIN
  4. SYNTHROID [Concomitant]
  5. DURAGESIC (PARACETAMOL, ORPHENADRINE CITRATE) [Concomitant]

REACTIONS (1)
  - HEPATITIS [None]
